FAERS Safety Report 8042764-4 (Version None)
Quarter: 2012Q1

REPORT INFORMATION
  Report Type: 
  Country: None (occurrence: None)
  Receive Date: 20120112
  Receipt Date: 20120109
  Transmission Date: 20120608
  Serious: Yes (Death)
  Sender: FDA-Public Use
  Company Number: CA-CELGENEUS-028-21880-12010759

PATIENT
  Sex: Male

DRUGS (9)
  1. DIGOXIN [Concomitant]
     Dosage: .125 MILLIGRAM
     Route: 065
  2. NITROGLYCERIN [Concomitant]
     Dosage: .4 MILLIGRAM
     Route: 065
  3. SPIRONOLACTONE [Concomitant]
     Dosage: 12.5 MILLIGRAM
     Route: 065
  4. MICARDIS [Concomitant]
     Dosage: 20 MILLIGRAM
     Route: 065
  5. REVLIMID [Suspect]
     Indication: MULTIPLE MYELOMA
     Dosage: 10 MILLIGRAM
     Route: 048
  6. CARVEDILOL [Concomitant]
     Dosage: 6.25 MILLIGRAM
     Route: 065
  7. WARFARIN SODIUM [Concomitant]
     Route: 065
  8. LASIX [Concomitant]
     Dosage: 40/80 MG
     Route: 065
  9. RANITIDINE [Concomitant]
     Dosage: 150 MILLIGRAM
     Route: 065

REACTIONS (1)
  - CARDIAC ARREST [None]
